FAERS Safety Report 9308590 (Version 4)
Quarter: 2013Q4

REPORT INFORMATION
  Report Type: Spontaneous
  Country: US (occurrence: US)
  Receive Date: 20130524
  Receipt Date: 20131028
  Transmission Date: 20140711
  Serious: Yes (Other)
  Sender: FDA-Public Use
  Company Number: US-TARO-2013P1006124

PATIENT
  Age: 70 Year
  Sex: Male
  Weight: 79.38 kg

DRUGS (4)
  1. WARFARIN SODIUM TABLETS USP 5MG [Suspect]
     Route: 048
     Dates: start: 2006, end: 20130607
  2. PREDNISONE [Suspect]
     Dates: start: 20130601
  3. SIMVASTATIN [Concomitant]
  4. MULTIVITAMIN [Concomitant]

REACTIONS (18)
  - Age-related macular degeneration [Not Recovered/Not Resolved]
  - Eye haemorrhage [Unknown]
  - Visual impairment [Not Recovered/Not Resolved]
  - Haemorrhage [Unknown]
  - Tooth extraction [Recovered/Resolved]
  - Laceration [Unknown]
  - International normalised ratio fluctuation [Unknown]
  - Drug interaction [Unknown]
  - Tooth disorder [Unknown]
  - Nasopharyngitis [Unknown]
  - Gingival bleeding [Recovered/Resolved]
  - Epistaxis [Recovered/Resolved]
  - Platelet aggregation [Unknown]
  - Neutrophil toxic granulation present [Unknown]
  - Lymphocyte morphology abnormal [Unknown]
  - Gingival swelling [Unknown]
  - Tooth disorder [Unknown]
  - Platelet morphology abnormal [Unknown]
